FAERS Safety Report 7342222-6 (Version None)
Quarter: 2011Q1

REPORT INFORMATION
  Report Type: 
  Country: None (occurrence: None)
  Receive Date: 20110310
  Receipt Date: 20110302
  Transmission Date: 20110831
  Serious: Yes (Hospitalization)
  Sender: FDA-Public Use
  Company Number: US-BIOGENIDEC-2010BI032229

PATIENT
  Age: 52 Year
  Sex: Male

DRUGS (3)
  1. LUNESTA [Concomitant]
  2. TYSABRI [Suspect]
     Indication: MULTIPLE SCLEROSIS
     Route: 042
     Dates: start: 20091119
  3. XANAX [Concomitant]

REACTIONS (3)
  - ROAD TRAFFIC ACCIDENT [None]
  - ABASIA [None]
  - SPINAL CORD INJURY [None]
